FAERS Safety Report 7223457-X (Version None)
Quarter: 2011Q1

REPORT INFORMATION
  Report Type: 
  Country: None (occurrence: None)
  Receive Date: 20110112
  Receipt Date: 20100830
  Transmission Date: 20110831
  Serious: No
  Sender: FDA-Public Use
  Company Number: US-ALLERGAN-1003622US

PATIENT
  Age: 64 Year
  Sex: Female

DRUGS (15)
  1. REFRESH PLUS [Concomitant]
  2. SEROQUEL [Concomitant]
  3. COQ10 [Concomitant]
  4. FISH OIL [Concomitant]
  5. FOSAMAX [Concomitant]
  6. MERIPLEX [Concomitant]
  7. ARTANE [Concomitant]
  8. ASPIRIN [Concomitant]
  9. RESTASIS [Suspect]
     Indication: DRY EYE
     Dosage: 1 GTT, BID
     Route: 047
     Dates: start: 20100201
  10. VITAMIN D [Concomitant]
  11. AQUAGEL [Concomitant]
  12. REMERON [Concomitant]
  13. LIPITOR [Concomitant]
  14. MULTI-VITAMINS [Concomitant]
  15. SOOTHE [Concomitant]
     Indication: DRY EYE
     Dosage: 1 GTT, PRN
     Route: 047

REACTIONS (5)
  - VISION BLURRED [None]
  - EUSTACHIAN TUBE DISORDER [None]
  - FOREIGN BODY [None]
  - EYE PAIN [None]
  - EYE IRRITATION [None]
